FAERS Safety Report 5290761-4 (Version None)
Quarter: 2007Q2

REPORT INFORMATION
  Report Type: 
  Country: None (occurrence: None)
  Receive Date: 20070409
  Receipt Date: 20070330
  Transmission Date: 20071010
  Serious: Yes (Death, Life-Threatening)
  Sender: FDA-Public Use
  Company Number: JP-PFIZER INC-2007026345

PATIENT
  Age: 81 Year
  Sex: Male

DRUGS (8)
  1. JZOLOFT [Suspect]
     Indication: DEPRESSION
     Dosage: DAILY DOSE:50MG
     Route: 048
     Dates: start: 20070223, end: 20070322
  2. NORVASC [Concomitant]
     Route: 048
  3. SOLANAX [Concomitant]
     Route: 048
  4. GASMOTIN [Concomitant]
     Route: 048
  5. MYSLEE [Concomitant]
     Route: 048
  6. TENORMIN [Concomitant]
     Route: 048
  7. NITOROL R [Concomitant]
     Route: 048
  8. DILTIAZEM HCL [Concomitant]
     Route: 048

REACTIONS (1)
  - COMPLETED SUICIDE [None]
